APPROVED DRUG PRODUCT: SALAGEN
Active Ingredient: PILOCARPINE HYDROCHLORIDE
Strength: 5MG
Dosage Form/Route: TABLET;ORAL
Application: N020237 | Product #001 | TE Code: AB
Applicant: ADVANZ PHARMA (US) CORP
Approved: Mar 22, 1994 | RLD: Yes | RS: No | Type: RX